FAERS Safety Report 6868688-3 (Version None)
Quarter: 2010Q3

REPORT INFORMATION
  Report Type: 
  Country: None (occurrence: None)
  Receive Date: 20100721
  Receipt Date: 20100721
  Transmission Date: 20110219
  Serious: Yes (Other)
  Sender: FDA-Public Use
  Company Number: None

PATIENT
  Age: 43 Year
  Sex: Female
  Weight: 79.54 kg

DRUGS (1)
  1. REQUIP [Suspect]
     Indication: RESTLESS LEGS SYNDROME
     Dosage: 0.5 MG AT BEDTIME PO
     Route: 048
     Dates: start: 20100712, end: 20100712

REACTIONS (3)
  - HEAD INJURY [None]
  - IMPAIRED WORK ABILITY [None]
  - SYNCOPE [None]
